FAERS Safety Report 9285351 (Version 1)
Quarter: 2013Q2

REPORT INFORMATION
  Report Type: Spontaneous
  Country: GB (occurrence: None)
  Receive Date: 20130506
  Receipt Date: 20130506
  Transmission Date: 20140414
  Serious: Yes (Hospitalization, Other)
  Sender: FDA-Public Use
  Company Number: GER/UKI/13/0029365

PATIENT
  Age: 49 Year
  Sex: Female

DRUGS (11)
  1. FLUOXETINE [Suspect]
     Indication: PRODUCT USED FOR UNKNOWN INDICATION
     Route: 048
     Dates: start: 20130124
  2. BISOPROLOL [Suspect]
     Indication: PRODUCT USED FOR UNKNOWN INDICATION
     Route: 048
  3. ASPIRIN (ACETYLSALICYLIC ACID) [Suspect]
     Indication: PRODUCT USED FOR UNKNOWN INDICATION
     Route: 048
  4. FUROSEMIDE (FUROSEMIDE) [Suspect]
     Indication: PRODUCT USED FOR UNKNOWN INDICATION
     Route: 048
  5. CLOPIDOGREL [Suspect]
     Indication: PRODUCT USED FOR UNKNOWN INDICATION
     Route: 048
  6. IBUPROFEN (IBUPROFEN) [Suspect]
     Indication: PRODUCT USED FOR UNKNOWN INDICATION
     Route: 048
  7. PARACETAMOL [Suspect]
     Indication: PRODUCT USED FOR UNKNOWN INDICATION
     Route: 048
  8. RAMIPRIL [Suspect]
     Indication: PRODUCT USED FOR UNKNOWN INDICATION
     Route: 048
  9. ZAPONEX [Suspect]
     Indication: SCHIZOPHRENIA
     Dates: start: 20041014, end: 20130129
  10. GAVISCON (GAVISCON /00237601/) [Concomitant]
  11. LANSOPRAZOLE (LANSOPRAZOLE) [Concomitant]

REACTIONS (11)
  - Intentional overdose [None]
  - Agitation [None]
  - Faecal incontinence [None]
  - Dysarthria [None]
  - Confusional state [None]
  - Coma scale abnormal [None]
  - Alanine aminotransferase increased [None]
  - Dehydration [None]
  - Blood cholesterol increased [None]
  - Blood alkaline phosphatase increased [None]
  - Renal failure acute [None]
